FAERS Safety Report 10064762 (Version 1)
Quarter: 2014Q1

REPORT INFORMATION
  Report Type: Spontaneous
  Country: US (occurrence: None)
  Receive Date: 20140328
  Receipt Date: 20140328
  Transmission Date: 20141002
  Serious: Yes (Other)
  Sender: FDA-Public Use
  Company Number: 1000052841

PATIENT
  Sex: Female

DRUGS (4)
  1. LINZESS (LINACLOTIDE) (145 MICROGRAM, CAPSULES) [Suspect]
     Indication: IRRITABLE BOWEL SYNDROME
     Dosage: 145 MCG, 1 IN 1 D
     Route: 048
     Dates: start: 20140110, end: 20140111
  2. SYNTHROID [Concomitant]
  3. ESTRADIOL [Concomitant]
  4. MVI [Concomitant]

REACTIONS (2)
  - Diarrhoea [None]
  - Intentional drug misuse [None]
